FAERS Safety Report 5146675-3 (Version None)
Quarter: 2006Q4

REPORT INFORMATION
  Report Type: 
  Country: None (occurrence: None)
  Receive Date: 20061109
  Receipt Date: 20061025
  Transmission Date: 20070319
  Serious: Yes (Hospitalization)
  Sender: FDA-Public Use
  Company Number: PHBS2006FR16653

PATIENT
  Age: 85 Year
  Sex: Male
  Weight: 83 kg

DRUGS (4)
  1. CIBADREX [Suspect]
     Dosage: UNK, QD
     Route: 048
  2. LASIX [Suspect]
     Dosage: 40 MG, QD
     Route: 048
  3. ANAFRANIL [Suspect]
     Dosage: 75 MG, QD
     Route: 048
     Dates: end: 20060620
  4. AMLOR [Suspect]
     Dosage: 5 MG, QD
     Route: 048

REACTIONS (2)
  - FALL [None]
  - RHABDOMYOLYSIS [None]
